FAERS Safety Report 8510432-8 (Version None)
Quarter: 2012Q3

REPORT INFORMATION
  Report Type: 
  Country: None (occurrence: None)
  Receive Date: 20120714
  Receipt Date: 20120711
  Transmission Date: 20120928
  Serious: Yes (Death)
  Sender: FDA-Public Use
  Company Number: PHHY2012PL058652

PATIENT
  Age: 10 Year
  Sex: Female

DRUGS (3)
  1. MYCOPHENOLATE MEFETIL [Suspect]
     Indication: LIVER TRANSPLANT
  2. CYCLOSPORINE [Suspect]
     Indication: LIVER TRANSPLANT
  3. TACROLIMUS [Suspect]
     Indication: LIVER TRANSPLANT

REACTIONS (1)
  - LIVER TRANSPLANT REJECTION [None]
